FAERS Safety Report 5395770-2 (Version None)
Quarter: 2007Q3

REPORT INFORMATION
  Report Type: 
  Country: None (occurrence: None)
  Receive Date: 20070724
  Receipt Date: 20070712
  Transmission Date: 20080115
  Serious: Yes (Other)
  Sender: FDA-Public Use
  Company Number: GB-PFIZER INC-2007046448

PATIENT
  Age: 64 Year
  Sex: Female
  Weight: 85 kg

DRUGS (4)
  1. CABASER [Suspect]
     Indication: PARKINSON'S DISEASE
     Route: 048
     Dates: start: 20010928, end: 20050901
  2. NARATRIPTAN [Concomitant]
     Route: 048
  3. CO-BENELDOPA [Concomitant]
     Route: 048
     Dates: start: 20030201
  4. CO-CARELDOPA [Concomitant]
     Route: 048

REACTIONS (3)
  - DEPRESSION [None]
  - DRUG WITHDRAWAL SYNDROME [None]
  - PATHOLOGICAL GAMBLING [None]
